FAERS Safety Report 15951419 (Version 1)
Quarter: 2019Q1

REPORT INFORMATION
  Report Type: Spontaneous
  Country: US (occurrence: US)
  Receive Date: 20190211
  Receipt Date: 20190211
  Transmission Date: 20190417
  Serious: Yes (Other)
  Sender: FDA-Public Use
  Company Number: US-AKORN PHARMACEUTICALS-2019AKN00195

PATIENT
  Sex: Male

DRUGS (1)
  1. MYORISAN [Suspect]
     Active Substance: ISOTRETINOIN
     Dosage: UNK
     Dates: start: 20180525, end: 20181127

REACTIONS (4)
  - Depression [Unknown]
  - Decreased interest [Unknown]
  - Anger [Unknown]
  - Performance status decreased [Unknown]

NARRATIVE: CASE EVENT DATE: 2018
